FAERS Safety Report 4551192-5 (Version None)
Quarter: 2005Q1

REPORT INFORMATION
  Report Type: 
  Country: None (occurrence: None)
  Receive Date: 20050110
  Receipt Date: 20040223
  Transmission Date: 20050727
  Serious: Yes (Other)
  Sender: FDA-Public Use
  Company Number: 2003-09-0949

PATIENT
  Sex: Female
  Weight: 105.2345 kg

DRUGS (9)
  1. CORRECTOL [Suspect]
     Indication: CONSTIPATION
     Dosage: ORAL
     Route: 048
     Dates: start: 19790101, end: 20030101
  2. FEEN-A-MINT [Suspect]
     Indication: CONSTIPATION
     Dates: start: 19790101, end: 20030101
  3. EX-LAX [Suspect]
     Dates: start: 19790101, end: 20030101
  4. DULCOLAX [Suspect]
     Dates: start: 19790101, end: 20030101
  5. PRINIVIL [Concomitant]
  6. NEXIUM [Concomitant]
  7. ALLEGRA-D (FEXOFENADINE/PSEUDOEPHEDRINE) [Concomitant]
  8. REGLAN [Concomitant]
  9. ZESTRIL [Concomitant]

REACTIONS (6)
  - ABDOMINAL DISCOMFORT [None]
  - ABDOMINAL PAIN [None]
  - CONSTIPATION [None]
  - GASTROOESOPHAGEAL REFLUX DISEASE [None]
  - HEPATIC ENZYME INCREASED [None]
  - LAXATIVE ABUSE [None]
